FAERS Safety Report 10926688 (Version 3)
Quarter: 2016Q4

REPORT INFORMATION
  Report Type: Spontaneous
  Country: US (occurrence: US)
  Receive Date: 20150318
  Receipt Date: 20161221
  Transmission Date: 20170206
  Serious: Yes (Other)
  Sender: FDA-Public Use
  Company Number: US-ELI_LILLY_AND_COMPANY-US201304008976

PATIENT
  Sex: Female
  Weight: 58.05 kg

DRUGS (12)
  1. CYMBALTA [Suspect]
     Active Substance: DULOXETINE HYDROCHLORIDE
     Indication: FIBROMYALGIA
     Dosage: 30 MG, EACH MORNING
     Route: 048
     Dates: start: 20120214, end: 201202
  2. AMOXI-CLAVULAN                     /02043401/ [Concomitant]
     Dosage: 1 DF, UNKNOWN
  3. FLUOCINONIDE. [Concomitant]
     Active Substance: FLUOCINONIDE
     Dosage: 0.05 %, UNKNOWN
  4. RANITIDINE. [Concomitant]
     Active Substance: RANITIDINE
     Dosage: 150 MG, UNK
  5. SULFAMETHOXAZOLE-TRIMETHOPRIM (SMZ) [Concomitant]
     Active Substance: SULFAMETHOXAZOLE\TRIMETHOPRIM
     Dosage: 1 DF, UNKNOWN
  6. ATARAX [Concomitant]
     Active Substance: HYDROXYZINE\HYDROXYZINE HYDROCHLORIDE
     Dosage: 25 MG, UNKNOWN
  7. CYMBALTA [Suspect]
     Active Substance: DULOXETINE HYDROCHLORIDE
     Dosage: 30 MG, QD
     Route: 048
     Dates: start: 20130124, end: 20130210
  8. METHYLPREDNISOLONE. [Concomitant]
     Active Substance: METHYLPREDNISOLONE
     Dosage: 4 MG, UNKNOWN
  9. VIGAMOX [Concomitant]
     Active Substance: MOXIFLOXACIN HYDROCHLORIDE
     Dosage: 0.5 %, UNKNOWN
     Route: 047
  10. SINGULAIR [Concomitant]
     Active Substance: MONTELUKAST SODIUM
     Dosage: 10 MG, UNKNOWN
  11. FLEXERIL [Concomitant]
     Active Substance: CYCLOBENZAPRINE HYDROCHLORIDE
     Indication: PRODUCT USED FOR UNKNOWN INDICATION
     Dosage: 5 MG, PRN
     Route: 048
  12. CYMBALTA [Suspect]
     Active Substance: DULOXETINE HYDROCHLORIDE
     Dosage: 60 MG, QD
     Route: 048
     Dates: start: 201202

REACTIONS (40)
  - Photophobia [Recovered/Resolved]
  - Affect lability [Unknown]
  - Anxiety [Recovered/Resolved]
  - Nausea [Recovered/Resolved]
  - Dizziness [Recovered/Resolved]
  - Tinnitus [Recovered/Resolved]
  - Altered state of consciousness [Recovered/Resolved]
  - Hypoaesthesia [Recovered/Resolved]
  - Incontinence [Recovered/Resolved]
  - Paraesthesia [Recovered/Resolved]
  - Insomnia [Recovered/Resolved]
  - Dysphoria [Unknown]
  - Peripheral swelling [Recovered/Resolved]
  - Sensory disturbance [Unknown]
  - Headache [Recovered/Resolved]
  - Vertigo [Unknown]
  - Seizure [Recovered/Resolved]
  - Thinking abnormal [Recovered/Resolved]
  - Urinary tract infection [Unknown]
  - Fatigue [Unknown]
  - Back pain [Recovered/Resolved]
  - Oropharyngeal pain [Recovered/Resolved]
  - Weight increased [Unknown]
  - Drug hypersensitivity [Unknown]
  - Arthralgia [Recovered/Resolved]
  - Cold sweat [Recovered/Resolved]
  - Tremor [Unknown]
  - Visual impairment [Recovered/Resolved]
  - Anger [Recovered/Resolved]
  - Nightmare [Recovered/Resolved]
  - Drug ineffective [Recovered/Resolved]
  - Hyperhidrosis [Unknown]
  - Muscular weakness [Recovered/Resolved]
  - Feeling abnormal [Recovered/Resolved]
  - Chest pain [Recovered/Resolved]
  - Night sweats [Recovered/Resolved]
  - Drug withdrawal syndrome [Recovered/Resolved]
  - Vomiting [Recovered/Resolved]
  - Diarrhoea [Unknown]
  - Irritability [Unknown]
